FAERS Safety Report 7594461 (Version 4)
Quarter: 2013Q4

REPORT INFORMATION
  Report Type: Spontaneous
  Country: US (occurrence: US)
  Receive Date: 20100920
  Receipt Date: 20131231
  Transmission Date: 20140711
  Serious: Yes (Hospitalization)
  Sender: FDA-Public Use
  Company Number: US-BAYER-201033820NA

PATIENT
  Age: 29 Year
  Sex: Female
  Weight: 64 kg

DRUGS (15)
  1. YAZ [Suspect]
     Indication: CONTRACEPTION
     Dosage: UNK UNK, UNK
     Route: 065
     Dates: start: 200505, end: 200710
  2. YASMIN [Suspect]
     Indication: CONTRACEPTION
     Dosage: UNK UNK, UNK
     Route: 065
     Dates: start: 200505, end: 200710
  3. ATENOLOL [Concomitant]
     Indication: MITRAL VALVE PROLAPSE
     Dosage: UNK
     Dates: start: 2000, end: 2008
  4. ATENOLOL [Concomitant]
     Indication: TACHYCARDIA
  5. ST. JOHN^S WORT [Concomitant]
     Dosage: UNK
     Dates: start: 2000, end: 2008
  6. STEROIDS INJECTIONS [Concomitant]
     Dosage: UNK
     Dates: start: 200708
  7. ANTIBIOTICS [Concomitant]
     Dosage: UNK
     Dates: start: 200708
  8. ZANTAC [Concomitant]
     Dosage: 40 MG, QD
  9. REGLAN [Concomitant]
     Dosage: 10 MG, TID
     Route: 042
  10. MORPHINE [Concomitant]
     Dosage: 4 MG, UNK
     Route: 042
  11. TRAMADOL [Concomitant]
  12. ULTRAM [Concomitant]
     Indication: PAIN IN EXTREMITY
  13. DONNATAL [Concomitant]
  14. ACIPHEX [Concomitant]
  15. CORTISONE [Concomitant]

REACTIONS (2)
  - Pulmonary embolism [Recovered/Resolved]
  - Deep vein thrombosis [Recovering/Resolving]
